FAERS Safety Report 15580472 (Version 27)
Quarter: 2020Q1

REPORT INFORMATION
  Report Type: Spontaneous
  Country: US (occurrence: US)
  Receive Date: 20181102
  Receipt Date: 20200327
  Transmission Date: 20200409
  Serious: Yes (Hospitalization)
  Sender: FDA-Public Use
  Company Number: US-ACTELION-A-US2018-181044

PATIENT
  Age: 59 Year
  Sex: Female
  Weight: 59.41 kg

DRUGS (7)
  1. LETAIRIS [Concomitant]
     Active Substance: AMBRISENTAN
     Dosage: 10 MG, QD
  2. VELETRI [Suspect]
     Active Substance: EPOPROSTENOL
     Dosage: 14 NG/KG, PER MIN
     Route: 042
  3. VELETRI [Suspect]
     Active Substance: EPOPROSTENOL
     Dosage: 22 NG/KG, PER MIN
     Route: 042
  4. VELETRI [Suspect]
     Active Substance: EPOPROSTENOL
     Dosage: 20 NG/KG, PER MIN
     Route: 042
  5. DILTIAZEM. [Concomitant]
     Active Substance: DILTIAZEM
  6. VELETRI [Suspect]
     Active Substance: EPOPROSTENOL
     Indication: PULMONARY HYPERTENSION
     Dosage: 28 NG/KG, PER MIN
     Route: 042
  7. ADEMPAS [Concomitant]
     Active Substance: RIOCIGUAT
     Dosage: 2.5 MG, TID
     Route: 048

REACTIONS (40)
  - Vascular device infection [Unknown]
  - Colonoscopy [Unknown]
  - Intussusception [Unknown]
  - Hospitalisation [Unknown]
  - Nasopharyngitis [Unknown]
  - Dysarthria [Recovering/Resolving]
  - Contusion [Unknown]
  - Large intestinal haemorrhage [Unknown]
  - Catheter site extravasation [Unknown]
  - Pruritus [Unknown]
  - Catheter site erythema [Recovered/Resolved]
  - Device dislocation [Recovering/Resolving]
  - Dizziness [Unknown]
  - Catheter site discharge [Recovered/Resolved]
  - Rash [Unknown]
  - Cardiac failure congestive [Unknown]
  - Intestinal polyp [Unknown]
  - Lower respiratory tract infection [Unknown]
  - Cough [Unknown]
  - Pyrexia [Unknown]
  - Fall [Unknown]
  - Injury [Unknown]
  - Dyspnoea [Recovering/Resolving]
  - Nasal discharge discolouration [Unknown]
  - Catheter site scab [Recovered/Resolved]
  - Fatigue [Unknown]
  - Catheter site related reaction [Unknown]
  - Pulmonary oedema [Unknown]
  - Balance disorder [Unknown]
  - Complication associated with device [Unknown]
  - Device leakage [Unknown]
  - Epistaxis [Unknown]
  - Asthenia [Recovering/Resolving]
  - Mass [Recovered/Resolved]
  - Internal haemorrhage [Unknown]
  - Catheter site haemorrhage [Unknown]
  - Weight decreased [Recovering/Resolving]
  - Depression [Unknown]
  - Nasal congestion [Unknown]
  - Catheter site rash [Unknown]

NARRATIVE: CASE EVENT DATE: 20181105
